FAERS Safety Report 6026350-3 (Version None)
Quarter: 2008Q4

REPORT INFORMATION
  Report Type: 
  Country: None (occurrence: None)
  Receive Date: 20081222
  Receipt Date: 20080925
  Transmission Date: 20090506
  Serious: No
  Sender: FDA-Public Use
  Company Number: US-WYE-H05347408

PATIENT
  Age: 46 Year
  Sex: Male
  Weight: 86.26 kg

DRUGS (2)
  1. PRISTIQ [Suspect]
     Indication: DEPRESSION
     Dosage: 50 MG 1X PER 1 DAY, ORAL
     Route: 048
     Dates: start: 20080615
  2. RITALIN [Concomitant]

REACTIONS (6)
  - AGITATION [None]
  - DEPRESSED MOOD [None]
  - DRUG INEFFECTIVE [None]
  - MEDICATION RESIDUE [None]
  - THINKING ABNORMAL [None]
  - WRONG TECHNIQUE IN DRUG USAGE PROCESS [None]
